FAERS Safety Report 9570193 (Version 1)
Quarter: 2013Q3

REPORT INFORMATION
  Report Type: Spontaneous
  Country: US (occurrence: US)
  Receive Date: 20130930
  Receipt Date: 20130930
  Transmission Date: 20140515
  Serious: No
  Sender: FDA-Public Use
  Company Number: US-AMGEN-USASP2013064634

PATIENT
  Age: 56 Year
  Sex: Female

DRUGS (8)
  1. ENBREL [Suspect]
     Indication: PRODUCT USED FOR UNKNOWN INDICATION
     Dosage: 50 MG, QWK
     Route: 058
  2. MELOXICAM [Concomitant]
     Dosage: 7.5 MG, UNK
  3. PREDNISONE [Concomitant]
     Dosage: 1 MG, UNK
  4. TRICOR                             /00499301/ [Concomitant]
     Dosage: 48 MG, UNK
  5. ROBAXIN [Concomitant]
     Dosage: 500 MG, UNK
  6. LISINOPRIL [Concomitant]
     Dosage: 2.5 MG, UNK
  7. ESTRADIOL [Concomitant]
     Dosage: 1 MG, UNK
  8. FLEXERIL                           /00428402/ [Concomitant]
     Dosage: 5 MG, UNK

REACTIONS (1)
  - Injection site pain [Unknown]
